FAERS Safety Report 7718245-1 (Version None)
Quarter: 2011Q3

REPORT INFORMATION
  Report Type: 
  Country: None (occurrence: None)
  Receive Date: 20110830
  Receipt Date: 20110820
  Transmission Date: 20111222
  Serious: Yes (Hospitalization)
  Sender: FDA-Public Use
  Company Number: PHHY2011US75331

PATIENT
  Age: 33 Year
  Sex: Female

DRUGS (1)
  1. CLOZAPINE [Suspect]
     Dosage: 600 MG, DAILY

REACTIONS (8)
  - DRUG INEFFECTIVE [None]
  - ABNORMAL BEHAVIOUR [None]
  - ANTIPSYCHOTIC DRUG LEVEL INCREASED [None]
  - ANHEDONIA [None]
  - SEXUALLY INAPPROPRIATE BEHAVIOUR [None]
  - POVERTY OF SPEECH [None]
  - URINARY INCONTINENCE [None]
  - FLAT AFFECT [None]
